FAERS Safety Report 8227104-X (Version None)
Quarter: 2012Q1

REPORT INFORMATION
  Report Type: 
  Country: None (occurrence: None)
  Receive Date: 20120322
  Receipt Date: 20120313
  Transmission Date: 20120608
  Serious: Yes (Other)
  Sender: FDA-Public Use
  Company Number: FI-JNJFOC-20120306720

PATIENT
  Sex: Female
  Weight: 56 kg

DRUGS (2)
  1. REMICADE [Suspect]
     Indication: ARTHRITIS
     Route: 042
     Dates: start: 20111220
  2. REMICADE [Suspect]
     Route: 042
     Dates: start: 20120123, end: 20120123

REACTIONS (7)
  - DYSPNOEA [None]
  - DIZZINESS [None]
  - INFUSION RELATED REACTION [None]
  - PYREXIA [None]
  - ERYTHEMA [None]
  - RESPIRATORY TRACT INFECTION [None]
  - PERIPHERAL COLDNESS [None]
